FAERS Safety Report 14392467 (Version 2)
Quarter: 2019Q2

REPORT INFORMATION
  Report Type: Report from Study
  Country: AU (occurrence: AU)
  Receive Date: 20180116
  Receipt Date: 20190529
  Transmission Date: 20190711
  Serious: Yes (Other)
  Sender: FDA-Public Use
  Company Number: AU-JAZZ-2018-AU-000994

PATIENT

DRUGS (1)
  1. XYREM [Suspect]
     Active Substance: SODIUM OXYBATE
     Indication: NARCOLEPSY
     Route: 048

REACTIONS (10)
  - Dyspnoea [Unknown]
  - Nausea [Unknown]
  - Dizziness [Unknown]
  - Depressed mood [Unknown]
  - Asthenia [Unknown]
  - Diarrhoea [Unknown]
  - Psychotic disorder [Unknown]
  - Abdominal pain upper [Unknown]
  - Deafness [Unknown]
  - Feeling abnormal [Unknown]
